FAERS Safety Report 5567453-7 (Version None)
Quarter: 2007Q4

REPORT INFORMATION
  Report Type: 
  Country: None (occurrence: None)
  Receive Date: 20071214
  Receipt Date: 20071203
  Transmission Date: 20080405
  Serious: Yes (Other)
  Sender: FDA-Public Use
  Company Number: 2007SP023483

PATIENT
  Sex: Male

DRUGS (1)
  1. TEMODAL [Suspect]
     Indication: DRUG USE FOR UNKNOWN INDICATION
     Dosage: 250 MG;
     Dates: start: 20070201, end: 20071001

REACTIONS (5)
  - DEMENTIA ALZHEIMER'S TYPE [None]
  - EJACULATION FAILURE [None]
  - ERECTILE DYSFUNCTION [None]
  - NEOPLASM PROGRESSION [None]
  - VISION BLURRED [None]
